FAERS Safety Report 21520138 (Version 2)
Quarter: 2022Q4

REPORT INFORMATION
  Report Type: Report from Study
  Country: CA (occurrence: CA)
  Receive Date: 20221028
  Receipt Date: 20221103
  Transmission Date: 20230112
  Serious: Yes (Death, Hospitalization)
  Sender: FDA-Public Use
  Company Number: CA-ABBVIE-4142283

PATIENT
  Sex: Male

DRUGS (1)
  1. VENCLEXTA [Suspect]
     Active Substance: VENETOCLAX
     Indication: Acute myeloid leukaemia
     Dosage: DAY 1, STRENGTH- 50 MG
     Route: 048
     Dates: start: 20220928, end: 20220928

REACTIONS (7)
  - Tumour lysis syndrome [Recovering/Resolving]
  - Death [Fatal]
  - Anal incontinence [Recovering/Resolving]
  - Asthenia [Recovering/Resolving]
  - Malaise [Recovering/Resolving]
  - Confusional state [Recovering/Resolving]
  - Urinary incontinence [Recovering/Resolving]

NARRATIVE: CASE EVENT DATE: 20220101
